FAERS Safety Report 5645541-4 (Version None)
Quarter: 2008Q1

REPORT INFORMATION
  Report Type: 
  Country: None (occurrence: None)
  Receive Date: 20080229
  Receipt Date: 20080221
  Transmission Date: 20080703
  Serious: Yes (Other)
  Sender: FDA-Public Use
  Company Number: US-KINGPHARMUSA00001-K200800060

PATIENT

DRUGS (3)
  1. INTAL [Suspect]
     Indication: ASTHMA
     Dosage: UNK, QD
     Dates: start: 19860101
  2. REPROTEROL HYDROCHLORIDE [Suspect]
     Indication: ASTHMA
     Dates: start: 19860101
  3. CORTISONE [Concomitant]
     Indication: ASTHMA
     Dosage: UNK, PRN

REACTIONS (2)
  - ACCIDENT AT WORK [None]
  - TENDON RUPTURE [None]
